FAERS Safety Report 4380496-4 (Version None)
Quarter: 2004Q2

REPORT INFORMATION
  Report Type: 
  Country: None (occurrence: None)
  Receive Date: 20040618
  Receipt Date: 20040608
  Transmission Date: 20050107
  Serious: Yes (Hospitalization)
  Sender: FDA-Public Use
  Company Number: US-JNJFOC-20040401623

PATIENT
  Sex: Female
  Weight: 90.4 kg

DRUGS (8)
  1. REMICADE [Suspect]
     Dosage: ACCENT STUDY
     Route: 042
  2. REMICADE [Suspect]
     Dosage: ACCENT STUDY
     Route: 042
  3. REMICADE [Suspect]
     Dosage: ACCENT STUDY
     Route: 042
  4. REMICADE [Suspect]
     Indication: CROHN'S DISEASE
     Dosage: 5 VIALS
     Route: 042
  5. BENADRYL [Concomitant]
     Indication: PREMEDICATION
     Dosage: PRE-MEDICATION FOR INFLIXIMAB
     Route: 042
  6. TYLENOL [Concomitant]
  7. MULTIVITAMINS WITH IRON [Concomitant]
  8. CALCIUM [Concomitant]

REACTIONS (7)
  - BLOOD PRESSURE DECREASED [None]
  - DRUG EXPOSURE DURING PREGNANCY [None]
  - EPSTEIN-BARR VIRUS INFECTION [None]
  - POLYARTHRITIS [None]
  - PREGNANCY [None]
  - PYREXIA [None]
  - RENAL FAILURE [None]
